FAERS Safety Report 21387595 (Version 1)
Quarter: 2022Q3

REPORT INFORMATION
  Report Type: Spontaneous
  Country: CN (occurrence: CN)
  Receive Date: 20220928
  Receipt Date: 20220928
  Transmission Date: 20221027
  Serious: Yes (Other)
  Sender: FDA-Public Use
  Company Number: CN-ANIPHARMA-2022-CN-000311

PATIENT
  Age: 74 Year
  Sex: Male

DRUGS (2)
  1. BICALUTAMIDE [Suspect]
     Active Substance: BICALUTAMIDE
     Indication: Product used for unknown indication
     Route: 048
     Dates: start: 202108
  2. ABIRATERONE [Suspect]
     Active Substance: ABIRATERONE
     Indication: Prostate cancer
     Dosage: 1,000 MG/TIME, ORALLY, ONCE A DAY /500 MG/TIME, ORALLY, ONCE A DAY
     Route: 048

REACTIONS (3)
  - Cardiac failure [Recovered/Resolved]
  - Drug interaction [Unknown]
  - Intentional product misuse [Unknown]
